FAERS Safety Report 7277273-3 (Version None)
Quarter: 2011Q1

REPORT INFORMATION
  Report Type: 
  Country: None (occurrence: None)
  Receive Date: 20110202
  Receipt Date: 20110202
  Transmission Date: 20110831
  Serious: Yes (Other)
  Sender: FDA-Public Use
  Company Number: None

PATIENT
  Age: 69 Year
  Sex: Female
  Weight: 109.7705 kg

DRUGS (3)
  1. VENLAFAXINE HCL [Suspect]
     Indication: ARTHRALGIA
     Dosage: ONE CAPSULE EVERY MORNING PO
     Route: 048
     Dates: start: 20110110, end: 20110131
  2. VENLAFAXINE HCL [Suspect]
     Indication: DEPRESSION
     Dosage: ONE CAPSULE EVERY MORNING PO
     Route: 048
     Dates: start: 20110110, end: 20110131
  3. EFFEXOR XR [Concomitant]

REACTIONS (5)
  - PRODUCT SUBSTITUTION ISSUE [None]
  - PHOTOPSIA [None]
  - INSOMNIA [None]
  - VISUAL IMPAIRMENT [None]
  - NIGHTMARE [None]
